FAERS Safety Report 6380211-9 (Version None)
Quarter: 2009Q3

REPORT INFORMATION
  Report Type: 
  Country: None (occurrence: None)
  Receive Date: 20090929
  Receipt Date: 20090915
  Transmission Date: 20100115
  Serious: Yes (Hospitalization, Other)
  Sender: FDA-Public Use
  Company Number: US-CELGENEUS-01-01-0126

PATIENT
  Sex: Male

DRUGS (7)
  1. THALOMID [Suspect]
     Dosage: 200-400MG/DAY
     Route: 048
     Dates: start: 20001001, end: 20001228
  2. THALOMID [Suspect]
     Dosage: 200-400MG/DAY
     Route: 048
     Dates: start: 20010302, end: 20010324
  3. LASIX [Concomitant]
     Indication: DRUG USE FOR UNKNOWN INDICATION
     Dosage: 80 MG
  4. CARDURA [Concomitant]
     Indication: DRUG USE FOR UNKNOWN INDICATION
     Dosage: 50 MG/QD
     Route: 065
  5. ALDACTONE [Concomitant]
     Indication: DRUG USE FOR UNKNOWN INDICATION
     Dosage: 1 TAB/QD
  6. QUININE [Concomitant]
     Indication: DRUG USE FOR UNKNOWN INDICATION
     Dosage: 325 MG/QD
     Route: 065
  7. SENOKOT [Concomitant]

REACTIONS (15)
  - ATRIOVENTRICULAR BLOCK FIRST DEGREE [None]
  - BLOOD CREATININE INCREASED [None]
  - BLOOD UREA INCREASED [None]
  - CARDIAC FAILURE CONGESTIVE [None]
  - CHILLS [None]
  - COUGH [None]
  - DERMATITIS CONTACT [None]
  - DIZZINESS [None]
  - DYSPNOEA [None]
  - PAIN [None]
  - POSTNASAL DRIP [None]
  - RASH [None]
  - SINUS BRADYCARDIA [None]
  - SYNCOPE [None]
  - VISUAL IMPAIRMENT [None]
